FAERS Safety Report 6042575-5 (Version None)
Quarter: 2009Q1

REPORT INFORMATION
  Report Type: 
  Country: None (occurrence: None)
  Receive Date: 20090119
  Receipt Date: 20090113
  Transmission Date: 20090719
  Serious: No
  Sender: FDA-Public Use
  Company Number: US-JNJFOC-20081004120

PATIENT
  Sex: Male
  Weight: 75.75 kg

DRUGS (5)
  1. DURAGESIC-100 [Suspect]
     Indication: BACK PAIN
     Route: 062
  2. DURAGESIC-100 [Suspect]
     Indication: PANCREATITIS
     Route: 062
  3. DURAGESIC-100 [Suspect]
     Indication: ARTHRITIS
     Route: 062
  4. DURAGESIC-100 [Suspect]
     Indication: ABDOMINAL PAIN
     Route: 062
  5. UNSPECIFIED MEDICATIONS [Concomitant]
     Route: 065

REACTIONS (3)
  - DERMATITIS CONTACT [None]
  - INCORRECT DRUG ADMINISTRATION DURATION [None]
  - WRONG TECHNIQUE IN DRUG USAGE PROCESS [None]
